FAERS Safety Report 20083248 (Version 1)
Quarter: 2021Q4

REPORT INFORMATION
  Report Type: Report from Study
  Country: US (occurrence: US)
  Receive Date: 20211117
  Receipt Date: 20211117
  Transmission Date: 20220303
  Serious: Yes (Death, Other)
  Sender: FDA-Public Use
  Company Number: US-ACADIA PHARMACEUTICALS INC.-ACA-2021-PIM-003783

PATIENT
  Sex: Female

DRUGS (28)
  1. NUPLAZID [Suspect]
     Active Substance: PIMAVANSERIN TARTRATE
     Indication: Parkinson^s disease psychosis
     Dosage: 34 MILLIGRAM, QD
     Route: 065
     Dates: start: 20191203, end: 20211007
  2. NUPLAZID [Suspect]
     Active Substance: PIMAVANSERIN TARTRATE
     Indication: Hallucination
  3. NUPLAZID [Suspect]
     Active Substance: PIMAVANSERIN TARTRATE
     Indication: Delusion
  4. LANOLIN [Concomitant]
     Active Substance: LANOLIN
  5. PETROLATUM WHITE [Concomitant]
  6. ACETAMINOPHEN [Concomitant]
     Active Substance: ACETAMINOPHEN
     Dosage: 325 MILLIGRAM 2 TAB EVERY 4 HRS
     Route: 048
  7. BISACODYL [Concomitant]
     Active Substance: BISACODYL
     Dosage: 10 MG (1 SUPPOSITORY EVERY DAY)
     Route: 054
  8. CALMOSEPTINE [ZINC OXIDE] [Concomitant]
     Dosage: 0.44-20.6% (APPLY TOPICALLY TO BUTTOCKS TWICE DAILY)
  9. CARBIDOPA\LEVODOPA [Concomitant]
     Active Substance: CARBIDOPA\LEVODOPA
     Dosage: 25-100MG (1.5 TAB 3 TIMES A DAY)
  10. CARBIDOPA\LEVODOPA [Concomitant]
     Active Substance: CARBIDOPA\LEVODOPA
     Dosage: 25-100MG (1 TAB ONCE DAILY AT 8 PM FOR POSTENCEPHALITIC PARKINSON^S DISEASE)
     Route: 048
  11. CLOPIDOGREL [Concomitant]
     Active Substance: CLOPIDOGREL BISULFATE
     Dosage: 75 MG (1 TAB DAILY IN AM)
  12. CYANOCOBALAMIN [Concomitant]
     Active Substance: CYANOCOBALAMIN
     Dosage: 100 MCG (1 TAB DAILY AT 8 AM FOR SUPPLEMENT)
     Route: 048
  13. FUROSEMIDE [Concomitant]
     Active Substance: FUROSEMIDE
     Dosage: 20 MG (1 TAB EVERYDAY)
     Route: 048
  14. FUROSEMIDE [Concomitant]
     Active Substance: FUROSEMIDE
     Dosage: 40 MG (1 TAB EVERYDAY)
     Route: 048
  15. GAVILAX [Concomitant]
     Active Substance: POLYETHYLENE GLYCOL 3350
     Dosage: 17 GM IN 80 OZ OF LIQUID ONCE DAILY PRN)
     Route: 048
  16. ISOSORBIDE MONONITRATE [Concomitant]
     Active Substance: ISOSORBIDE MONONITRATE
     Dosage: 60 MG (1 TAB IN AM)
  17. LOPERAMIDE [Concomitant]
     Active Substance: LOPERAMIDE
     Dosage: 2 MG (1 CAP 4 TIMES A DAY)
     Route: 048
  18. METOPROLOL TARTRATE [Concomitant]
     Active Substance: METOPROLOL TARTRATE
     Dosage: 1 TAB TWICE A DAY
  19. MILK OF MAGNESIA [Concomitant]
     Active Substance: MAGNESIUM HYDROXIDE
     Dosage: 400MG/5ML (30 ML EVERYDAY)
     Route: 048
  20. NITROGLYCERIN [Concomitant]
     Active Substance: NITROGLYCERIN
     Dosage: 0.4 MG (1 TAB FOR CHEST PAIN)
  21. NYSTOP [Concomitant]
     Active Substance: NYSTATIN
     Dosage: 100000 UNIT/GM (APPLY UNDER BREASTS AND ABDOMINAL FOLDS TWICE DAILY)
  22. ONDANSETRON [Concomitant]
     Active Substance: ONDANSETRON
     Dosage: 4 MG
  23. PANTOPRAZOLE [Concomitant]
     Active Substance: PANTOPRAZOLE
     Dosage: 20 MG (1 TAB TWICE DAILY)
  24. PRAVASTATIN [Concomitant]
     Active Substance: PRAVASTATIN
     Dosage: 40 MG (1 TAB EVERYDAY)
     Route: 048
  25. RANOLAZINE [Concomitant]
     Active Substance: RANOLAZINE
     Dosage: 500 MG (1 TAB TWICE A DAY)
  26. SENNA PLUS [Concomitant]
     Active Substance: DOCUSATE SODIUM\SENNOSIDES\SENNOSIDES A AND B
     Dosage: 8.6 MG-50 MG (2 TABS EVERY EVENING AT 8 PM FOR CONSTIPATION)
     Route: 048
  27. TRIPLE ANTIBIOTIC [GRAMICIDIN;NEOMYCIN SULFATE;POLYMYXIN B SULFATE] [Concomitant]
  28. ERGOCALCIFEROL\RETINOL [Concomitant]
     Active Substance: ERGOCALCIFEROL\RETINOL
     Dosage: APPLY 4 TIMES DAILY FOR IRRITATED SKIN/RASH)

REACTIONS (1)
  - Arteriosclerosis coronary artery [Recovered/Resolved]
